FAERS Safety Report 4434701-6 (Version None)
Quarter: 2004Q3

REPORT INFORMATION
  Report Type: 
  Country: None (occurrence: None)
  Receive Date: 20040728
  Receipt Date: 20040624
  Transmission Date: 20050211
  Serious: Yes (Disabling, Other)
  Sender: FDA-Public Use
  Company Number: WAES 0406USA02258

PATIENT
  Age: 60 Year
  Sex: Female
  Weight: 52.1637 kg

DRUGS (5)
  1. EMEND [Suspect]
     Indication: PROPHYLAXIS OF NAUSEA AND VOMITING
     Dosage: 125 MG/1X/PO
     Route: 048
     Dates: start: 20040610, end: 20040610
  2. ADRIAMYCIN PFS [Concomitant]
  3. CYTOXAN [Concomitant]
  4. DECADRON (DEXAMETHASONE SODIUM) [Concomitant]
  5. PALANOSETRON HYDROCHLORIDE [Concomitant]

REACTIONS (3)
  - ASTHENIA [None]
  - HYPONATRAEMIA [None]
  - NAUSEA [None]
